FAERS Safety Report 9038591 (Version 1)
Quarter: 2013Q1

REPORT INFORMATION
  Report Type: Report from Study
  Country: US (occurrence: US)
  Receive Date: 20130129
  Receipt Date: 20130129
  Transmission Date: 20140127
  Serious: No
  Sender: FDA-Public Use
  Company Number: US-ABBOTT-12P-163-0935896-00

PATIENT
  Age: 37 Year
  Sex: Female

DRUGS (5)
  1. HUMIRA 40 MG/0.8 ML PEN [Suspect]
     Indication: CROHN^S DISEASE
     Dosage: DAY 1
     Route: 058
     Dates: start: 20120509
  2. LANSOPRAZOLE [Concomitant]
     Indication: PRODUCT USED FOR UNKNOWN INDICATION
     Dosage: 30MG EVERY DAY
  3. IRON [Concomitant]
     Indication: PRODUCT USED FOR UNKNOWN INDICATION
     Dosage: EVERY DAY
  4. IBUPROFEN [Concomitant]
     Indication: PAIN
  5. LORTAB [Concomitant]
     Indication: PAIN

REACTIONS (4)
  - Dizziness [Recovered/Resolved]
  - Injection site pain [Recovered/Resolved]
  - Tremor [Recovered/Resolved]
  - Tremor [Recovered/Resolved]
